FAERS Safety Report 5975356-9 (Version None)
Quarter: 2008Q4

REPORT INFORMATION
  Report Type: 
  Country: None (occurrence: None)
  Receive Date: 20081202
  Receipt Date: 20081124
  Transmission Date: 20090506
  Serious: Yes (Death)
  Sender: FDA-Public Use
  Company Number: BE-ASTRAZENECA-2008AC02844

PATIENT
  Age: 4602 Day
  Sex: Male
  Weight: 55 kg

DRUGS (14)
  1. DIPRIVAN [Suspect]
     Indication: INJURY
     Dosage: 3-4 MG/KG/H
     Route: 042
     Dates: start: 20080905, end: 20080905
  2. DIPRIVAN [Suspect]
     Dosage: 4-5 MG/KG/H
     Route: 042
     Dates: start: 20080906, end: 20080906
  3. DIPRIVAN [Suspect]
     Dosage: 6 MG/KG/H
     Route: 042
     Dates: start: 20080907, end: 20080907
  4. DIPRIVAN [Suspect]
     Dosage: 6.5 MG/KG/H
     Route: 042
     Dates: start: 20080908, end: 20080908
  5. DIPRIVAN [Suspect]
     Dosage: TEMPORARY 7 MG/KG/H, THEN RETURNED TO 6.5 MG/KG/H
     Route: 042
     Dates: start: 20080909, end: 20080909
  6. DIPRIVAN [Suspect]
     Dosage: 6.5 MG/KG/H THEN 3 MG/KG/H
     Route: 042
     Dates: start: 20080910, end: 20080910
  7. LEVOPHED [Concomitant]
     Dosage: 2-3 GAMMA/KG/MIN
     Dates: start: 20080908, end: 20080910
  8. LEVOPHED [Concomitant]
     Dosage: INCREASED
     Dates: start: 20080910
  9. SOLU-MEDROL [Concomitant]
     Route: 042
     Dates: start: 20080905
  10. DEPAKENE [Concomitant]
     Dosage: INDUCTION DOSE 400 MG OVER 1 HOUR ONCE ONLY
     Route: 042
     Dates: start: 20080905
  11. DEPAKENE [Concomitant]
     Dosage: 1200 MG/24 H
     Route: 042
     Dates: start: 20080905
  12. AUGMENTIN '125' [Concomitant]
     Route: 042
     Dates: start: 20080906
  13. LYSOMUCIL [Concomitant]
     Dosage: 2 X 1 AMPULE PER DAY
     Route: 042
     Dates: start: 20080905
  14. ZANTAC [Concomitant]
     Dosage: 2 X 1 AMPUL PER DAY
     Route: 042
     Dates: start: 20080905

REACTIONS (2)
  - OVERDOSE [None]
  - PROPOFOL INFUSION SYNDROME [None]
